FAERS Safety Report 15111387 (Version 1)
Quarter: 2018Q3

REPORT INFORMATION
  Report Type: Spontaneous
  Country: FR (occurrence: FR)
  Receive Date: 20180705
  Receipt Date: 20180705
  Transmission Date: 20181010
  Serious: Yes (Life-Threatening)
  Sender: FDA-Public Use
  Company Number: FR-NAPPMUNDI-GBR-2018-0057129

PATIENT
  Age: 59 Year
  Sex: Male

DRUGS (3)
  1. ZOPICLONE [Suspect]
     Active Substance: ZOPICLONE
     Indication: PRODUCT USED FOR UNKNOWN INDICATION
     Dosage: NON RENSEIGNEE
     Route: 048
  2. OXYCONTIN [Suspect]
     Active Substance: OXYCODONE HYDROCHLORIDE
     Indication: PRODUCT USED FOR UNKNOWN INDICATION
     Dosage: NON RENSEIGNEE
     Route: 048
  3. ALPRAZOLAM. [Suspect]
     Active Substance: ALPRAZOLAM
     Indication: PRODUCT USED FOR UNKNOWN INDICATION
     Dosage: UNK
     Route: 048

REACTIONS (10)
  - Withdrawal syndrome [Recovered/Resolved]
  - Drug abuse [Recovered/Resolved]
  - Miosis [Recovered/Resolved]
  - Respiratory distress [Recovered/Resolved]
  - Tachycardia [Recovered/Resolved]
  - Tachypnoea [Recovered/Resolved]
  - Drug dependence [Recovered/Resolved with Sequelae]
  - Intentional product misuse [Recovered/Resolved]
  - Hyperthermia [Recovered/Resolved]
  - Drug dependence [Recovered/Resolved]

NARRATIVE: CASE EVENT DATE: 201801
